FAERS Safety Report 20019780 (Version 5)
Quarter: 2021Q4

REPORT INFORMATION
  Report Type: Spontaneous
  Country: US (occurrence: US)
  Receive Date: 20211101
  Receipt Date: 20211223
  Transmission Date: 20220303
  Serious: Yes (Disabling, Other)
  Sender: FDA-Public Use
  Company Number: US-EyePoint Pharmaceuticals, Inc.-US-EYP-21-00130

PATIENT
  Age: 69 Year
  Sex: Female

DRUGS (1)
  1. DEXYCU [Suspect]
     Active Substance: DEXAMETHASONE
     Indication: Post procedural inflammation
     Dosage: LEFT EYE/OS
     Route: 031
     Dates: start: 20210819, end: 20210819

REACTIONS (16)
  - Corneal decompensation [Not Recovered/Not Resolved]
  - Iris adhesions [Not Recovered/Not Resolved]
  - Corneal toxicity [Not Recovered/Not Resolved]
  - Corneal degeneration [Unknown]
  - Pupillary deformity [Not Recovered/Not Resolved]
  - Iris disorder [Not Recovered/Not Resolved]
  - Iris atrophy [Unknown]
  - Device dislocation [Not Recovered/Not Resolved]
  - Corneal oedema [Recovering/Resolving]
  - Visual impairment [Not Recovered/Not Resolved]
  - Medical device removal [Not Recovered/Not Resolved]
  - Glare [Not Recovered/Not Resolved]
  - Photophobia [Unknown]
  - Pain [Recovering/Resolving]
  - Vision blurred [Unknown]
  - Overdose [Recovered/Resolved]

NARRATIVE: CASE EVENT DATE: 20200820
